FAERS Safety Report 9469233 (Version 3)
Quarter: 2013Q4

REPORT INFORMATION
  Report Type: Spontaneous
  Country: JP (occurrence: JP)
  Receive Date: 20130821
  Receipt Date: 20131209
  Transmission Date: 20140711
  Serious: Yes (Other)
  Sender: FDA-Public Use
  Company Number: JP-TEVA-427429USA

PATIENT
  Age: 61 Year
  Sex: Male

DRUGS (4)
  1. BENDAMUSTINE [Suspect]
     Indication: B-CELL LYMPHOMA
     Dosage: 90 MG/M2 DAILY; UID/QD
     Route: 042
     Dates: start: 20130509, end: 20130510
  2. BENDAMUSTINE [Suspect]
     Dosage: 90 MG/M2 DAILY; UID/QD
     Route: 042
     Dates: start: 20130606, end: 20130607
  3. BENDAMUSTINE [Suspect]
     Dosage: 90 MG/M2 DAILY; UID/QD
     Route: 042
     Dates: start: 20130704, end: 20130705
  4. BENDAMUSTINE [Suspect]
     Dosage: 90 MG/M2 DAILY; UID/QD
     Route: 042
     Dates: start: 20130801

REACTIONS (2)
  - Injection site vasculitis [Recovered/Resolved]
  - Neuropathy peripheral [Recovered/Resolved]
